FAERS Safety Report 9460461 (Version 2)
Quarter: 2013Q3

REPORT INFORMATION
  Report Type: Spontaneous
  Country: US (occurrence: US)
  Receive Date: 20130815
  Receipt Date: 20130925
  Transmission Date: 20140515
  Serious: Yes (Life-Threatening, Hospitalization, Other)
  Sender: FDA-Public Use
  Company Number: CHPA2013US012589

PATIENT
  Age: 71 Year
  Sex: Male

DRUGS (2)
  1. GAS-X EXTRA STRENGTH SOFTGELS [Suspect]
     Indication: FLATULENCE
     Dosage: 2 DF, QD
     Route: 048
     Dates: start: 2012
  2. GAS-X EXTRA STRENGTH SOFTGELS [Suspect]
     Dosage: 2 DF, QD
     Route: 048
     Dates: start: 201307

REACTIONS (9)
  - Septic shock [Recovering/Resolving]
  - Blood pressure decreased [Recovered/Resolved]
  - Oesophageal ulcer [Recovering/Resolving]
  - Lower limb fracture [Recovering/Resolving]
  - Aphagia [Recovered/Resolved]
  - Dysphagia [Recovered/Resolved]
  - Asthenia [Recovering/Resolving]
  - Flatulence [Unknown]
  - Drug ineffective [Unknown]
